FAERS Safety Report 22656168 (Version 1)
Quarter: 2023Q2

REPORT INFORMATION
  Report Type: Report from Study
  Country: CO (occurrence: CO)
  Receive Date: 20230629
  Receipt Date: 20230629
  Transmission Date: 20230721
  Serious: Yes (Other)
  Sender: FDA-Public Use
  Company Number: CO-ABBVIE-5308961

PATIENT
  Sex: Female
  Weight: 58 kg

DRUGS (2)
  1. BOTOX [Suspect]
     Active Substance: ONABOTULINUMTOXINA
     Indication: Migraine
     Dosage: TIME INTERVAL: AS NECESSARY: FORM STRENGTH: 200 UNIT
     Route: 030
     Dates: start: 20180125, end: 20180125
  2. ESCITALOPRAM [Concomitant]
     Active Substance: ESCITALOPRAM OXALATE
     Indication: Nervous system disorder
     Dosage: 10 DID NOT PROVIDE UNITS
     Route: 048

REACTIONS (9)
  - Infarction [Recovering/Resolving]
  - Weight increased [Not Recovered/Not Resolved]
  - Neck pain [Recovering/Resolving]
  - Rhinitis [Not Recovered/Not Resolved]
  - Therapeutic product effect decreased [Recovering/Resolving]
  - Headache [Recovering/Resolving]
  - Mobility decreased [Recovering/Resolving]
  - Somnolence [Recovering/Resolving]
  - Vomiting [Recovering/Resolving]

NARRATIVE: CASE EVENT DATE: 20180101
